FAERS Safety Report 22117318 (Version 1)
Quarter: 2023Q1

REPORT INFORMATION
  Report Type: Spontaneous
  Country: US (occurrence: US)
  Receive Date: 20230320
  Receipt Date: 20230320
  Transmission Date: 20230418
  Serious: Yes (Hospitalization)
  Sender: FDA-Public Use
  Company Number: US-ELITE LABORATORIES INC.-2023ELT00028

PATIENT
  Age: 72 Year
  Sex: Female

DRUGS (1)
  1. PHENTERMINE [Suspect]
     Active Substance: PHENTERMINE

REACTIONS (1)
  - Myocardial infarction [Recovered/Resolved]
